FAERS Safety Report 8186522-9 (Version None)
Quarter: 2012Q1

REPORT INFORMATION
  Report Type: 
  Country: None (occurrence: None)
  Receive Date: 20120302
  Receipt Date: 20120302
  Transmission Date: 20120608
  Serious: No
  Sender: FDA-Public Use
  Company Number: None

PATIENT
  Sex: Female
  Weight: 55.3388 kg

DRUGS (1)
  1. LOSARTAN POTASSIUM [Suspect]
     Indication: HYPERTENSION
     Dosage: 1 TABLET ONCE A DAY
     Dates: start: 20120126, end: 20120206

REACTIONS (4)
  - BALANCE DISORDER [None]
  - DIZZINESS [None]
  - LYMPHADENOPATHY [None]
  - TINNITUS [None]
